FAERS Safety Report 7603864-3 (Version None)
Quarter: 2011Q3

REPORT INFORMATION
  Report Type: 
  Country: None (occurrence: None)
  Receive Date: 20110712
  Receipt Date: 20110705
  Transmission Date: 20111222
  Serious: No
  Sender: FDA-Public Use
  Company Number: US-PFIZER INC-2011151581

PATIENT
  Sex: Male
  Weight: 36.281 kg

DRUGS (3)
  1. ZYRTEC [Concomitant]
     Dosage: 10 MG, UNK
  2. MONTELUKAST [Concomitant]
  3. GENOTROPIN [Suspect]
     Dosage: 1.8 MG, EVERY DAY
     Route: 058

REACTIONS (2)
  - PYREXIA [None]
  - COUGH [None]
